FAERS Safety Report 6812244-X (Version None)
Quarter: 2010Q3

REPORT INFORMATION
  Report Type: 
  Country: None (occurrence: None)
  Receive Date: 20100701
  Receipt Date: 20100622
  Transmission Date: 20110219
  Serious: Yes (Other)
  Sender: FDA-Public Use
  Company Number: IT-MPIJNJ-2010-03159

PATIENT

DRUGS (2)
  1. VELCADE [Suspect]
     Indication: MULTIPLE MYELOMA
     Dosage: 2.1 MG, UNK
     Route: 042
     Dates: start: 20100528, end: 20100531
  2. DEXAMETHASONE [Concomitant]
     Dosage: 40 MG, CYCLIC
     Route: 048
     Dates: start: 20100528, end: 20100531

REACTIONS (1)
  - HYPERTENSIVE CRISIS [None]
